FAERS Safety Report 20671398 (Version 1)
Quarter: 2022Q2

REPORT INFORMATION
  Report Type: Spontaneous
  Country: JP (occurrence: JP)
  Receive Date: 20220404
  Receipt Date: 20220404
  Transmission Date: 20220720
  Serious: Yes (Hospitalization, Other)
  Sender: FDA-Public Use
  Company Number: JP-LUPIN PHARMACEUTICALS INC.-2022-04776

PATIENT
  Age: 60 Year
  Sex: Male

DRUGS (1)
  1. METHYLPREDNISOLONE [Suspect]
     Active Substance: METHYLPREDNISOLONE
     Indication: Arteriovenous fistula
     Dosage: UNK, STEROID PULSE THERAPY (INFUSION)
     Route: 065

REACTIONS (2)
  - Myelopathy [Recovering/Resolving]
  - Condition aggravated [Recovering/Resolving]
